FAERS Safety Report 14869858 (Version 1)
Quarter: 2018Q2

REPORT INFORMATION
  Report Type: Spontaneous
  Country: JP (occurrence: JP)
  Receive Date: 20180509
  Receipt Date: 20180509
  Transmission Date: 20180711
  Serious: Yes (Hospitalization)
  Sender: FDA-Public Use
  Company Number: JP-PFIZER INC-2018188181

PATIENT
  Age: 19 Year
  Sex: Female
  Weight: 115.1 kg

DRUGS (8)
  1. VIMPAT [Suspect]
     Active Substance: LACOSAMIDE
     Indication: SEIZURE
     Dosage: 200 MG, 1X/DAY
     Route: 048
     Dates: start: 20180307
  2. FEXOFENADINE HYDROCHLORIDE. [Concomitant]
     Active Substance: FEXOFENADINE HYDROCHLORIDE
     Dosage: 120 MG, 1X/DAY
     Route: 065
  3. CORTRIL [Concomitant]
     Active Substance: HYDROCORTISONE
     Dosage: 30 MG, 1X/DAY
     Route: 065
  4. THYRADIN S [Concomitant]
     Active Substance: LEVOTHYROXINE SODIUM
     Dosage: 200 UG, 1X/DAY
     Route: 065
  5. FOSPHENYTOIN SODIUM. [Suspect]
     Active Substance: FOSPHENYTOIN SODIUM
     Indication: SEIZURE
     Dosage: 750 MG, 1X/DAY
     Route: 041
     Dates: start: 20180228, end: 20180306
  6. FOSPHENYTOIN SODIUM. [Suspect]
     Active Substance: FOSPHENYTOIN SODIUM
     Indication: PROPHYLAXIS
     Dosage: UNK
     Route: 041
     Dates: start: 201803
  7. MINIRINMELT OD [Concomitant]
     Dosage: 360 UG, 1X/DAY
     Route: 065
  8. FAMOTIDINE OD [Concomitant]
     Active Substance: FAMOTIDINE
     Dosage: 40 MG, 1X/DAY
     Route: 065

REACTIONS (2)
  - Pyrexia [Unknown]
  - Drug eruption [Recovered/Resolved]

NARRATIVE: CASE EVENT DATE: 20180312
